FAERS Safety Report 19677363 (Version 7)
Quarter: 2022Q2

REPORT INFORMATION
  Report Type: Spontaneous
  Country: US (occurrence: US)
  Receive Date: 20210810
  Receipt Date: 20220629
  Transmission Date: 20220721
  Serious: Yes (Hospitalization)
  Sender: FDA-Public Use
  Company Number: US-BIOCODEX2-2021000968

PATIENT

DRUGS (16)
  1. DIACOMIT [Suspect]
     Active Substance: STIRIPENTOL
     Indication: Severe myoclonic epilepsy of infancy
     Dosage: MIX ONE PACKET OF 250MG IN 10ML OF WATER AND TAKE 4ML THREE TIMES A DAY.
     Route: 048
     Dates: start: 20210626
  2. DIACOMIT [Suspect]
     Active Substance: STIRIPENTOL
     Dosage: 1CC THREE TIMES DAILY
     Route: 048
     Dates: start: 20210728
  3. DIACOMIT [Suspect]
     Active Substance: STIRIPENTOL
     Dosage: 1.75CC IN THE MORNING AND EVENING AND 1CC AT NOON.
     Route: 048
  4. DIACOMIT [Suspect]
     Active Substance: STIRIPENTOL
     Dosage: MIX ONE PACKET OF 250MG IN 10ML OF WATER AND TAKE 7ML EACH MORNING, 6ML AT MIDDDAY AND 7ML AT NIGHT
     Route: 048
  5. DIACOMIT [Suspect]
     Active Substance: STIRIPENTOL
     Dosage: 8 ML EVERY MORNING, 8 ML EVERY NIGHT AT BEDTIME THE PATIENT MIX EACH PACK WITH 10 ML OF WATER.
     Route: 048
  6. DIACOMIT [Suspect]
     Active Substance: STIRIPENTOL
     Dosage: 250MG TWICE DAILY
     Route: 048
  7. DIACOMIT [Suspect]
     Active Substance: STIRIPENTOL
     Dosage: 250MG ONCE IN THE MORNING, ONCE AT MIDDAY AND ONCE AT BEDTIME
     Route: 065
  8. DIACOMIT [Suspect]
     Active Substance: STIRIPENTOL
     Dosage: 200 MG THREE TIMES DAILY
     Route: 065
     Dates: start: 20210626
  9. DIACOMIT [Suspect]
     Active Substance: STIRIPENTOL
     Dosage: 250 ML, 9 ML VIA GASTRIC TUBE THREE TIMES DAILY
     Route: 065
  10. DIACOMIT [Suspect]
     Active Substance: STIRIPENTOL
     Dosage: 10ML, 3 TIMES DAILY
     Route: 065
  11. ONFI [Concomitant]
     Active Substance: CLOBAZAM
     Indication: Severe myoclonic epilepsy of infancy
     Dosage: UNK
     Route: 065
  12. DEPAKOTE [Concomitant]
     Active Substance: DIVALPROEX SODIUM
     Indication: Product used for unknown indication
     Dosage: UNK
     Route: 065
  13. DIAZEPAM [Concomitant]
     Active Substance: DIAZEPAM
     Indication: Product used for unknown indication
     Dosage: UNK
     Route: 065
  14. ENTECAVIR [Concomitant]
     Active Substance: ENTECAVIR
     Indication: Product used for unknown indication
     Route: 065
  15. FINTEPLA [Concomitant]
     Active Substance: FENFLURAMINE
     Indication: Product used for unknown indication
     Route: 065
  16. TOPAMAX [Concomitant]
     Active Substance: TOPIRAMATE
     Indication: Product used for unknown indication
     Route: 065

REACTIONS (8)
  - Seizure [Unknown]
  - Respiratory arrest [Unknown]
  - Platelet count decreased [Unknown]
  - Pneumonia [Unknown]
  - Respiratory disorder [Unknown]
  - Hospitalisation [Unknown]
  - Ear infection [Unknown]
  - Pyrexia [Unknown]

NARRATIVE: CASE EVENT DATE: 20210727
